FAERS Safety Report 5705771-X (Version None)
Quarter: 2008Q2

REPORT INFORMATION
  Report Type: 
  Country: None (occurrence: None)
  Receive Date: 20080414
  Receipt Date: 20080414
  Transmission Date: 20081010
  Serious: No
  Sender: FDA-Public Use
  Company Number: None

PATIENT
  Age: 33 Year
  Sex: Male
  Weight: 70.3075 kg

DRUGS (1)
  1. TERABINAFINE 250 MG OSCO PHARMACY [Suspect]
     Dosage: 1 TABLET 1 PER DAY
     Dates: start: 20080315, end: 20080317

REACTIONS (3)
  - NAUSEA [None]
  - PRURITUS [None]
  - RASH [None]
